FAERS Safety Report 11500069 (Version 1)
Quarter: 2015Q3

REPORT INFORMATION
  Report Type: Spontaneous
  Country: US (occurrence: US)
  Receive Date: 20150914
  Receipt Date: 20150914
  Transmission Date: 20151125
  Serious: Yes (Hospitalization, Other)
  Sender: FDA-Public Use
  Company Number: US-AMGEN-USASP2015093751

PATIENT
  Age: 21 Year
  Sex: Male

DRUGS (1)
  1. ENBREL [Suspect]
     Active Substance: ETANERCEPT
     Indication: PRODUCT USED FOR UNKNOWN INDICATION
     Dosage: UNK
     Route: 065

REACTIONS (10)
  - Spinal fracture [Unknown]
  - Tooth fracture [Unknown]
  - Rib fracture [Unknown]
  - Fractured sacrum [Unknown]
  - Traumatic liver injury [Unknown]
  - Hip fracture [Unknown]
  - Craniocerebral injury [Unknown]
  - Nerve injury [Unknown]
  - Pneumothorax [Unknown]
  - Road traffic accident [Unknown]

NARRATIVE: CASE EVENT DATE: 20150514
